FAERS Safety Report 20672545 (Version 2)
Quarter: 2022Q2

REPORT INFORMATION
  Report Type: Spontaneous
  Country: LB (occurrence: LB)
  Receive Date: 20220405
  Receipt Date: 20220412
  Transmission Date: 20220721
  Serious: Yes (Life-Threatening, Hospitalization, Other)
  Sender: FDA-Public Use
  Company Number: LB-SA-2022SA113462

PATIENT
  Age: 73 Year
  Sex: Female

DRUGS (24)
  1. OXALIPLATIN [Suspect]
     Active Substance: OXALIPLATIN
     Indication: Disease progression
     Dosage: UNK UNK, QCY
     Dates: start: 20190221
  2. OXALIPLATIN [Suspect]
     Active Substance: OXALIPLATIN
     Indication: Adenocarcinoma of colon
     Dosage: 25% DOSE REDUCTION
     Dates: start: 20190311
  3. BEVACIZUMAB [Suspect]
     Active Substance: BEVACIZUMAB
     Indication: Adenocarcinoma of colon
     Dosage: UNK UNK, QCY
     Route: 042
     Dates: start: 20190221
  4. BEVACIZUMAB [Suspect]
     Active Substance: BEVACIZUMAB
     Indication: Retroperitoneal neoplasm metastatic
  5. BEVACIZUMAB [Suspect]
     Active Substance: BEVACIZUMAB
     Indication: Disease progression
  6. BEVACIZUMAB [Suspect]
     Active Substance: BEVACIZUMAB
     Indication: Metastases to liver
  7. BEVACIZUMAB [Suspect]
     Active Substance: BEVACIZUMAB
     Indication: Metastases to lymph nodes
  8. BEVACIZUMAB [Suspect]
     Active Substance: BEVACIZUMAB
     Indication: Metastases to lung
  9. FLUOROURACIL [Suspect]
     Active Substance: FLUOROURACIL
     Indication: Metastases to lung
     Dosage: UNK UNK, QCY
     Dates: start: 20190221
  10. FLUOROURACIL [Suspect]
     Active Substance: FLUOROURACIL
     Indication: Metastases to liver
     Dosage: UNK
     Dates: start: 201805
  11. FLUOROURACIL [Suspect]
     Active Substance: FLUOROURACIL
     Indication: Disease progression
     Dosage: 25% DOSE REDUCTION
     Dates: start: 20190311
  12. FLUOROURACIL [Suspect]
     Active Substance: FLUOROURACIL
     Indication: Retroperitoneal neoplasm metastatic
  13. FLUOROURACIL [Suspect]
     Active Substance: FLUOROURACIL
     Indication: Adenocarcinoma of colon
  14. LEUCOVORIN [Suspect]
     Active Substance: LEUCOVORIN
     Indication: Metastases to liver
     Dosage: UNK UNK, QCY
     Route: 042
     Dates: start: 20190221
  15. LEUCOVORIN [Suspect]
     Active Substance: LEUCOVORIN
     Indication: Disease progression
     Dosage: 25% DOSE REDUCTION
     Route: 042
     Dates: start: 20190311
  16. LEUCOVORIN [Suspect]
     Active Substance: LEUCOVORIN
     Indication: Adenocarcinoma of colon
  17. LEUCOVORIN [Suspect]
     Active Substance: LEUCOVORIN
     Indication: Retroperitoneal neoplasm metastatic
  18. LEUCOVORIN [Suspect]
     Active Substance: LEUCOVORIN
     Indication: Metastases to lung
  19. IRINOTECAN [Concomitant]
     Active Substance: IRINOTECAN
     Indication: Disease progression
     Dosage: UNK
  20. IRINOTECAN [Concomitant]
     Active Substance: IRINOTECAN
     Indication: Adenocarcinoma of colon
  21. CETUXIMAB [Concomitant]
     Active Substance: CETUXIMAB
     Indication: Disease progression
     Dosage: UNK
  22. CETUXIMAB [Concomitant]
     Active Substance: CETUXIMAB
     Indication: Adenocarcinoma of colon
  23. AMLODIPINE BESILATE;IRBESARTAN [Concomitant]
     Dosage: UNK
  24. ATENOLOL [Concomitant]
     Active Substance: ATENOLOL
     Dosage: UNK

REACTIONS (24)
  - Thrombotic microangiopathy [Recovering/Resolving]
  - Fatigue [Recovering/Resolving]
  - Malaise [Recovering/Resolving]
  - Headache [Recovering/Resolving]
  - Nausea [Recovering/Resolving]
  - Vomiting [Recovering/Resolving]
  - Abdominal pain [Recovering/Resolving]
  - Chills [Recovering/Resolving]
  - Oliguria [Recovering/Resolving]
  - Chromaturia [Recovering/Resolving]
  - Jaundice [Recovering/Resolving]
  - Ocular icterus [Recovering/Resolving]
  - Thrombocytopenia [Recovering/Resolving]
  - Microangiopathic haemolytic anaemia [Recovering/Resolving]
  - Acute kidney injury [Recovering/Resolving]
  - Haemolysis [Recovering/Resolving]
  - Anisocytosis [Recovering/Resolving]
  - Poikilocytosis [Recovering/Resolving]
  - Hypochromasia [Recovering/Resolving]
  - Reticulocytosis [Recovering/Resolving]
  - Electrolyte imbalance [Recovering/Resolving]
  - Haemolytic uraemic syndrome [Recovering/Resolving]
  - Acute myocardial infarction [Unknown]
  - Neutropenia [Unknown]

NARRATIVE: CASE EVENT DATE: 20190101
